FAERS Safety Report 9128239 (Version 1)
Quarter: 2013Q1

REPORT INFORMATION
  Report Type: Spontaneous
  Country: FR (occurrence: FR)
  Receive Date: 20130125
  Receipt Date: 20130125
  Transmission Date: 20140127
  Serious: Yes (Hospitalization)
  Sender: FDA-Public Use
  Company Number: FR-SANOFI-AVENTIS-L/FRZOL99053

PATIENT
  Age: 53 Year
  Sex: Female

DRUGS (4)
  1. IVADAL [Suspect]
     Indication: INSOMNIA
     Dosage: DOSE TEXT:  ?UNIT DOSE: 10 MG
     Route: 048
     Dates: start: 199607
  2. IVADAL [Suspect]
     Indication: INSOMNIA
     Dosage: DOSE TEXT:  ?UNIT DOSE: 10 MG
     Route: 048
     Dates: start: 199609, end: 199609
  3. IVADAL [Suspect]
     Indication: INSOMNIA
     Route: 048
     Dates: end: 1998
  4. IVADAL [Suspect]
     Indication: INSOMNIA
     Dosage: DOSE TEXT:  ?UNIT DOSE: 10 MG
     Route: 048
     Dates: start: 199704, end: 199704

REACTIONS (7)
  - Hepatocellular injury [Recovered/Resolved]
  - Alanine aminotransferase increased [Recovered/Resolved]
  - Aspartate aminotransferase increased [Recovered/Resolved]
  - Gamma-glutamyltransferase increased [Recovered/Resolved]
  - Blood alkaline phosphatase increased [Recovered/Resolved]
  - Blood bilirubin increased [Recovered/Resolved]
  - Abdominal pain upper [Recovered/Resolved]
